FAERS Safety Report 14247050 (Version 4)
Quarter: 2023Q4

REPORT INFORMATION
  Report Type: Spontaneous
  Country: ES (occurrence: ES)
  Receive Date: 20171204
  Receipt Date: 20231219
  Transmission Date: 20240110
  Serious: Yes (Hospitalization, Other)
  Sender: FDA-Public Use
  Company Number: ES-AUROBINDO-AUR-APL-2017-44151

PATIENT
  Age: 49 Year
  Sex: Female

DRUGS (10)
  1. ATORVASTATIN [Suspect]
     Active Substance: ATORVASTATIN
     Indication: Product used for unknown indication
     Dosage: 20 MG
     Route: 065
  2. BETAHISTINE [Suspect]
     Active Substance: BETAHISTINE
     Indication: Product used for unknown indication
     Dosage: 8 MILLIGRAM
     Route: 065
  3. METFORMIN [Suspect]
     Active Substance: METFORMIN HYDROCHLORIDE
     Indication: Product used for unknown indication
     Dosage: 850 MILLIGRAM
     Route: 065
  4. OMEPRAZOLE [Suspect]
     Active Substance: OMEPRAZOLE
     Indication: Product used for unknown indication
     Dosage: 40 MG, UNK
     Route: 065
  5. OMEPRAZOLE [Suspect]
     Active Substance: OMEPRAZOLE
     Dosage: 40 MG, UNK
     Route: 065
  6. OMEPRAZOLE [Suspect]
     Active Substance: OMEPRAZOLE
     Dosage: 40 MG
     Route: 065
  7. DIAZEPAM [Suspect]
     Active Substance: DIAZEPAM
     Indication: Product used for unknown indication
     Dosage: 5 MG
     Route: 065
  8. BARNIDIPINE [Suspect]
     Active Substance: BARNIDIPINE
     Indication: Product used for unknown indication
     Dosage: 10 MG
     Route: 065
  9. NORETHINDRONE [Suspect]
     Active Substance: NORETHINDRONE
     Indication: Product used for unknown indication
     Dosage: ()
     Route: 065
  10. ACECLOFENAC [Suspect]
     Active Substance: ACECLOFENAC
     Indication: Product used for unknown indication
     Dosage: UNK
     Route: 065

REACTIONS (13)
  - Hypokalaemia [Recovered/Resolved]
  - Hypomagnesaemia [Recovered/Resolved]
  - Hypocalcaemia [Recovered/Resolved]
  - Musculoskeletal stiffness [Recovered/Resolved]
  - Metabolic syndrome [Recovered/Resolved]
  - Tetany [Recovered/Resolved]
  - Muscle spasms [Recovered/Resolved]
  - Hyperreflexia [Recovered/Resolved]
  - Asthenia [Recovered/Resolved]
  - Gait disturbance [Recovered/Resolved]
  - Tremor [Recovered/Resolved]
  - Muscular weakness [Recovered/Resolved]
  - Metabolic disorder [Recovered/Resolved]
